FAERS Safety Report 9748458 (Version 3)
Quarter: 2013Q4

REPORT INFORMATION
  Report Type: Spontaneous
  Country: CO (occurrence: CO)
  Receive Date: 20131212
  Receipt Date: 20131217
  Transmission Date: 20140711
  Serious: Yes (Other)
  Sender: FDA-Public Use
  Company Number: CO-VERTEX PHARMACEUTICALS INC-2013-010889

PATIENT
  Age: 68 Year
  Sex: Female

DRUGS (3)
  1. INCIVO [Suspect]
     Indication: HEPATITIS C
     Dosage: 750 MG, TID
     Route: 048
     Dates: start: 20131025, end: 20131203
  2. INTERFERON [Suspect]
     Indication: HEPATITIS C
     Dosage: DOSAGE FORM: AMPOULES
     Route: 058
     Dates: start: 20131025, end: 20131203
  3. RIBAVIRIN [Suspect]
     Indication: HEPATITIS C
     Dosage: DOSAGE FORM: TABLET
     Route: 048
     Dates: start: 20131025, end: 20131203

REACTIONS (7)
  - Escherichia urinary tract infection [Unknown]
  - Anaemia [Unknown]
  - Pyrexia [Not Recovered/Not Resolved]
  - Proctalgia [Unknown]
  - Anorectal discomfort [Unknown]
  - Rash [Unknown]
  - Faeces soft [Not Recovered/Not Resolved]
